FAERS Safety Report 18987318 (Version 2)
Quarter: 2021Q1

REPORT INFORMATION
  Report Type: Spontaneous
  Country: US (occurrence: US)
  Receive Date: 20210309
  Receipt Date: 20210324
  Transmission Date: 20210420
  Serious: Yes (Other)
  Sender: FDA-Public Use
  Company Number: US-ALLERGAN-2103977US

PATIENT
  Age: 78 Year
  Sex: Female

DRUGS (2)
  1. PREDNISONE. [Concomitant]
     Active Substance: PREDNISONE
  2. ASACOL HD [Suspect]
     Active Substance: MESALAMINE
     Indication: CROHN^S DISEASE
     Dosage: 2?4 800MG TABS DAILY (2 TABLETS MOST DAYS)
     Route: 048

REACTIONS (3)
  - Product residue present [Not Recovered/Not Resolved]
  - Colectomy [Unknown]
  - Large intestine perforation [Unknown]

NARRATIVE: CASE EVENT DATE: 202004
